FAERS Safety Report 15728251 (Version 1)
Quarter: 2018Q4

REPORT INFORMATION
  Report Type: Spontaneous
  Country: CN (occurrence: CN)
  Receive Date: 20181217
  Receipt Date: 20181217
  Transmission Date: 20190205
  Serious: Yes (Hospitalization, Other)
  Sender: FDA-Public Use
  Company Number: CN-ALKEM LABORATORIES LIMITED-CN-ALKEM-2018-07709

PATIENT
  Age: 74 Year
  Sex: Female

DRUGS (1)
  1. METFORMIN HYDROCHLORIDE. [Suspect]
     Active Substance: METFORMIN HYDROCHLORIDE
     Indication: TYPE 2 DIABETES MELLITUS
     Dosage: 1500 MG, UNK
     Route: 065

REACTIONS (2)
  - Lactic acidosis [Unknown]
  - Intentional overdose [Unknown]
